FAERS Safety Report 19749200 (Version 1)
Quarter: 2021Q3

REPORT INFORMATION
  Report Type: Other
  Country: CA (occurrence: CA)
  Receive Date: 20210826
  Receipt Date: 20210826
  Transmission Date: 20211014
  Serious: Yes (Other)
  Sender: FDA-Public Use
  Company Number: CA-APOTEX-2021AP035913

PATIENT
  Age: 31 Year
  Sex: Female
  Weight: 66 kg

DRUGS (2)
  1. PAROXETINE. [Suspect]
     Active Substance: PAROXETINE
     Indication: DEPRESSION
     Dosage: UNK, (THERAPY DURATION: ?273 UNKNOWN UNIT)
     Route: 048
  2. LAMICTAL [Suspect]
     Active Substance: LAMOTRIGINE
     Indication: DEPRESSION
     Dosage: UNK (THERAPY DURATION 365 UNKNOWN UNIT)
     Route: 048

REACTIONS (9)
  - Irritable bowel syndrome [Recovered/Resolved]
  - Product use in unapproved indication [Recovered/Resolved]
  - Amnesia [Recovered/Resolved]
  - Disturbance in attention [Recovered/Resolved]
  - Poisoning [Recovered/Resolved]
  - Thinking abnormal [Recovered/Resolved]
  - Abnormal dreams [Recovered/Resolved]
  - Abdominal pain [Recovered/Resolved]
  - Cerebral disorder [Recovered/Resolved]
